FAERS Safety Report 19065652 (Version 1)
Quarter: 2021Q1

REPORT INFORMATION
  Report Type: Report from Study
  Country: IT (occurrence: IT)
  Receive Date: 20210327
  Receipt Date: 20210327
  Transmission Date: 20210420
  Serious: Yes (Other)
  Sender: FDA-Public Use
  Company Number: IT-ACCORD-220781

PATIENT
  Age: 48 Year
  Sex: Male
  Weight: 81 kg

DRUGS (3)
  1. FLUOROURACIL MEDA [Suspect]
     Active Substance: FLUOROURACIL
     Indication: THYMIC CANCER METASTATIC
     Route: 042
     Dates: start: 20210113
  2. OXALIPLATIN. [Suspect]
     Active Substance: OXALIPLATIN
     Indication: THYMIC CANCER METASTATIC
     Route: 042
     Dates: start: 20210113
  3. FOLIC ACID. [Suspect]
     Active Substance: FOLIC ACID
     Indication: THYMIC CANCER METASTATIC
     Route: 042
     Dates: start: 20210113

REACTIONS (3)
  - Thrombocytopenia [Recovering/Resolving]
  - Off label use [Unknown]
  - Folliculitis [Recovering/Resolving]

NARRATIVE: CASE EVENT DATE: 20210127
